FAERS Safety Report 12148956 (Version 1)
Quarter: 2016Q1

REPORT INFORMATION
  Report Type: Report from Study
  Country: BR (occurrence: BR)
  Receive Date: 20160304
  Receipt Date: 20160304
  Transmission Date: 20160526
  Serious: Yes (Hospitalization, Other)
  Sender: FDA-Public Use
  Company Number: BR-ABBVIE-16K-020-1570943-00

PATIENT
  Age: 30 Year
  Sex: Female
  Weight: 62 kg

DRUGS (2)
  1. HUMIRA [Suspect]
     Active Substance: ADALIMUMAB
     Indication: ANKYLOSING SPONDYLITIS
     Route: 058
     Dates: start: 20140819, end: 20151228
  2. ELANI 28 [Concomitant]
     Indication: CONTRACEPTION
     Route: 048
     Dates: start: 201506

REACTIONS (7)
  - Synovial disorder [Recovered/Resolved]
  - Platelet count decreased [Unknown]
  - Arthritis [Recovered/Resolved]
  - Hepatomegaly [Recovering/Resolving]
  - Dengue fever [Not Recovered/Not Resolved]
  - Drug-induced liver injury [Recovering/Resolving]
  - Pain [Recovered/Resolved]

NARRATIVE: CASE EVENT DATE: 201408
